FAERS Safety Report 6800354-2 (Version None)
Quarter: 2010Q2

REPORT INFORMATION
  Report Type: 
  Country: None (occurrence: None)
  Receive Date: 20100623
  Receipt Date: 20100616
  Transmission Date: 20101027
  Serious: Yes (Other)
  Sender: FDA-Public Use
  Company Number: 2010SP030884

PATIENT
  Age: 50 Year
  Sex: Male

DRUGS (2)
  1. VIRAFERONPEG [Suspect]
     Indication: HEPATITIS C
     Dosage: 120 MG; QW; SC
     Route: 058
     Dates: start: 20081128, end: 20090501
  2. REBETOL [Suspect]
     Indication: HEPATITIS C
     Dosage: 1000 MG; QD; PO
     Route: 048
     Dates: start: 20081128, end: 20090501

REACTIONS (1)
  - TINNITUS [None]
